FAERS Safety Report 9575679 (Version 1)
Quarter: 2013Q4

REPORT INFORMATION
  Report Type: Spontaneous
  Country: US (occurrence: US)
  Receive Date: 20131001
  Receipt Date: 20131001
  Transmission Date: 20140711
  Serious: No
  Sender: FDA-Public Use
  Company Number: US-AMGEN-USASP2012084220

PATIENT
  Sex: Male

DRUGS (11)
  1. ENBREL [Suspect]
     Indication: RHEUMATOID ARTHRITIS
     Dosage: 50 MG, QWK
     Route: 058
     Dates: end: 201002
  2. ZYRTEC [Concomitant]
     Dosage: 5 MG, UNK
  3. ZOCOR [Concomitant]
     Dosage: 5 MG, UNK
     Route: 048
  4. COZAAR [Concomitant]
     Dosage: 25 MG, UNK
     Route: 048
  5. ASPIRIN [Concomitant]
     Dosage: 81 MG, UNK
  6. MULTIVITAMINS, PLAIN [Concomitant]
     Dosage: UNK
     Route: 048
  7. HYDROCORTISON                      /00028601/ [Concomitant]
     Dosage: 2.5%
  8. ALLOPURINOL [Concomitant]
     Dosage: 100 MG, UNK
  9. DICLOFENAC [Concomitant]
     Dosage: 25 MG, UNK
  10. TESSALON [Concomitant]
     Dosage: 200 MG, UNK
  11. METFORMIN [Concomitant]
     Dosage: 500 MG, UNK
     Route: 048

REACTIONS (3)
  - Therapeutic response decreased [Unknown]
  - Insomnia [Unknown]
  - Tremor [Unknown]
